FAERS Safety Report 8957582 (Version 1)
Quarter: 2012Q4

REPORT INFORMATION
  Report Type: 
  Country: US (occurrence: US)
  Receive Date: 20121211
  Receipt Date: 20121211
  Transmission Date: 20130627
  Serious: Yes (Hospitalization)
  Sender: FDA-Public Use
  Company Number: US-SANOFI-AVENTIS-2012SA088649

PATIENT
  Sex: Female

DRUGS (3)
  1. LANTUS [Suspect]
     Indication: TYPE II DIABETES MELLITUS
     Dosage: Dose:50 unit(s)
     Route: 058
     Dates: start: 2007
  2. BYETTA [Suspect]
     Route: 065
  3. LISINOPRIL [Concomitant]
     Indication: KIDNEY DISORDER
     Dates: start: 2012

REACTIONS (2)
  - Pancreatitis [Unknown]
  - Drug ineffective [Unknown]
